FAERS Safety Report 4769142-5 (Version None)
Quarter: 2005Q3

REPORT INFORMATION
  Report Type: 
  Country: None (occurrence: None)
  Receive Date: 20050912
  Receipt Date: 20050721
  Transmission Date: 20060218
  Serious: Yes (Other)
  Sender: FDA-Public Use
  Company Number: 2005-01547

PATIENT
  Age: 66 Year
  Sex: Male
  Weight: 110 kg

DRUGS (5)
  1. VELCADE [Suspect]
     Indication: MULTIPLE MYELOMA
     Dosage: 3.00 MG, IV BOLUS
     Route: 040
     Dates: start: 20050401
  2. TYLENOL [Concomitant]
  3. DEXAMETHASONE [Concomitant]
  4. ZOFRAN [Concomitant]
  5. BENADRYL (SODIUM CITRATE, AMMONIUM CHLORIDE, MENTHOL, DIPHENHYDRAMINE [Concomitant]

REACTIONS (1)
  - BACK PAIN [None]
